FAERS Safety Report 18471532 (Version 1)
Quarter: 2020Q4

REPORT INFORMATION
  Report Type: Spontaneous
  Country: US (occurrence: US)
  Receive Date: 20201105
  Receipt Date: 20201105
  Transmission Date: 20210114
  Serious: Yes (Other)
  Sender: FDA-Public Use
  Company Number: US-PURDUE-USA-2020-0163245

PATIENT

DRUGS (1)
  1. OXYCONTIN [Suspect]
     Active Substance: OXYCODONE HYDROCHLORIDE
     Indication: PAIN
     Dosage: UNK
     Route: 048

REACTIONS (10)
  - Judgement impaired [Unknown]
  - Depression [Unknown]
  - Mental disorder [Unknown]
  - General physical health deterioration [Unknown]
  - Suicidal ideation [Unknown]
  - Mental impairment [Unknown]
  - Autonomic nervous system imbalance [Unknown]
  - Impaired work ability [Unknown]
  - Amnesia [Unknown]
  - Lethargy [Unknown]
